FAERS Safety Report 5648396-7 (Version None)
Quarter: 2008Q1

REPORT INFORMATION
  Report Type: 
  Country: None (occurrence: None)
  Receive Date: 20080131
  Receipt Date: 20071107
  Transmission Date: 20080703
  Serious: No
  Sender: FDA-Public Use
  Company Number: 2005PV004451

PATIENT
  Age: 67 Year
  Sex: Male
  Weight: 90.3 kg

DRUGS (7)
  1. EXENATIDE (EXENATIDE)PEN, DISPOSABLE [Suspect]
     Indication: TYPE 2 DIABETES MELLITUS
     Dosage: 5, 10 UG, EACH MORNING/EVENING 2/D, SUBCUTANEOUS
     Route: 058
     Dates: start: 20050601, end: 20050101
  2. EXENATIDE (EXENATIDE)PEN, DISPOSABLE [Suspect]
     Indication: TYPE 2 DIABETES MELLITUS
     Dosage: 5, 10 UG, EACH MORNING/EVENING 2/D, SUBCUTANEOUS
     Route: 058
     Dates: start: 20050701, end: 20050701
  3. EXENATIDE (EXENATIDE)PEN, DISPOSABLE [Suspect]
     Indication: TYPE 2 DIABETES MELLITUS
     Dosage: 5, 10 UG, EACH MORNING/EVENING 2/D, SUBCUTANEOUS
     Route: 058
     Dates: start: 20051101
  4. EXENATIDE (EXENATIDE)PEN, DISPOSABLE [Suspect]
  5. EXENATIDE (EXENATIDE)PEN, DISPOSABLE [Suspect]
  6. EXENATIDE PEN, DISPOSABLE DEVICE (EXENATIDE PEN) [Concomitant]
  7. METFORMIN HCL [Concomitant]

REACTIONS (8)
  - ASTHENIA [None]
  - DIARRHOEA [None]
  - DIZZINESS [None]
  - DRUG EFFECT DECREASED [None]
  - DYSPNOEA [None]
  - HEADACHE [None]
  - HEART RATE IRREGULAR [None]
  - NAUSEA [None]
